FAERS Safety Report 8220587-0 (Version None)
Quarter: 2012Q1

REPORT INFORMATION
  Report Type: 
  Country: None (occurrence: None)
  Receive Date: 20120320
  Receipt Date: 20120312
  Transmission Date: 20120608
  Serious: Yes (Death, Other)
  Sender: FDA-Public Use
  Company Number: JP-GENZYME-THYM-1002234

PATIENT
  Sex: Female
  Weight: 65 kg

DRUGS (10)
  1. BUSULFAN [Concomitant]
     Indication: BONE MARROW CONDITIONING REGIMEN
     Dosage: UNK
     Route: 065
     Dates: start: 20091230, end: 20100103
  2. ACYCLOVIR [Concomitant]
     Indication: INFECTION PROPHYLAXIS
     Dosage: UNK
     Route: 065
     Dates: start: 20091225, end: 20100115
  3. VORICONAZOLE [Concomitant]
     Indication: ANTIFUNGAL PROPHYLAXIS
     Dosage: UNK
     Route: 065
     Dates: start: 20091225, end: 20100122
  4. CHLORPHENIRAMINE MALEATE [Concomitant]
     Indication: PREMEDICATION
     Dosage: UNK
     Route: 065
     Dates: start: 20091225, end: 20100225
  5. BACTRIM [Concomitant]
     Indication: INFECTION PROPHYLAXIS
     Dosage: UNK
     Route: 065
     Dates: start: 20091225, end: 20100104
  6. MICAFUNGIN SODIUM [Concomitant]
     Indication: ANTIFUNGAL PROPHYLAXIS
     Dosage: UNK
     Route: 065
     Dates: start: 20100109, end: 20100202
  7. GANCICLOVIR [Concomitant]
     Indication: INFECTION PROPHYLAXIS
     Dosage: UNK
     Route: 065
     Dates: start: 20100219, end: 20100222
  8. TACROLIMUS [Concomitant]
     Indication: PROPHYLAXIS AGAINST GRAFT VERSUS HOST DISEASE
     Dosage: UNK
     Route: 065
     Dates: start: 20100108, end: 20100228
  9. THYMOGLOBULIN [Suspect]
     Indication: BONE MARROW CONDITIONING REGIMEN
     Dosage: 115 MG, QD
     Route: 042
     Dates: start: 20091228, end: 20091229
  10. FLUDARABINE PHOSPHATE [Concomitant]
     Indication: BONE MARROW CONDITIONING REGIMEN
     Dosage: UNK
     Route: 065
     Dates: start: 20091225, end: 20100102

REACTIONS (5)
  - ACUTE GRAFT VERSUS HOST DISEASE IN INTESTINE [None]
  - CYTOMEGALOVIRUS ENTEROCOLITIS [None]
  - DISSEMINATED INTRAVASCULAR COAGULATION [None]
  - PULMONARY MYCOSIS [None]
  - RENAL HAEMATOMA [None]
